FAERS Safety Report 8133204-5 (Version None)
Quarter: 2012Q1

REPORT INFORMATION
  Report Type: 
  Country: None (occurrence: None)
  Receive Date: 20120213
  Receipt Date: 20120208
  Transmission Date: 20120608
  Serious: Yes (Hospitalization, Other)
  Sender: FDA-Public Use
  Company Number: PHEH2011US010926

PATIENT
  Sex: Male

DRUGS (1)
  1. ZOMETA [Suspect]
     Indication: LUNG NEOPLASM MALIGNANT
     Dosage: FREQUENCY: 4 WEEKS
     Route: 042
     Dates: start: 20110801, end: 20120110

REACTIONS (3)
  - PAIN [None]
  - RENAL DISORDER [None]
  - ABDOMINAL PAIN [None]
